FAERS Safety Report 7725339-3 (Version None)
Quarter: 2011Q3

REPORT INFORMATION
  Report Type: 
  Country: None (occurrence: None)
  Receive Date: 20110829
  Receipt Date: 20110822
  Transmission Date: 20111222
  Serious: Yes (Disabling)
  Sender: FDA-Public Use
  Company Number: 2011MA011329

PATIENT
  Age: 54 Year
  Sex: Male

DRUGS (10)
  1. INSULATARD NPH HUMAN [Concomitant]
  2. FUROSEMIDE [Concomitant]
  3. METFORMIN HYDROCHLORIDE [Suspect]
  4. SAXAGLIPTIN (NO PREF. NAME) [Suspect]
  5. ENALAPRIL MALEATE [Concomitant]
  6. SAXAGLIPTIN (NO PREF. NAME) [Suspect]
     Indication: TYPE 2 DIABETES MELLITUS
     Dosage: 5 MG; PO
     Route: 048
     Dates: start: 20101110, end: 20101204
  7. CRESTOR [Suspect]
  8. DIGOXIN [Concomitant]
  9. MAGNYL [Concomitant]
  10. POTASSIUM CHLORIDE [Concomitant]

REACTIONS (5)
  - HEADACHE [None]
  - FLUID RETENTION [None]
  - DISCOMFORT [None]
  - WEIGHT INCREASED [None]
  - IMPAIRED WORK ABILITY [None]
